FAERS Safety Report 8414235-4 (Version None)
Quarter: 2012Q2

REPORT INFORMATION
  Report Type: 
  Country: None (occurrence: None)
  Receive Date: 20120605
  Receipt Date: 20120601
  Transmission Date: 20120825
  Serious: Yes (Other)
  Sender: FDA-Public Use
  Company Number: US-PFIZER INC-2012127290

PATIENT
  Sex: Female
  Weight: 56.689 kg

DRUGS (13)
  1. CELEBREX [Concomitant]
     Indication: ARTHRITIS
     Dosage: 100 MG, DAILY IN THE MORNING
  2. PLAVIX [Suspect]
     Indication: THROMBOSIS PROPHYLAXIS
     Dosage: 75 MG, DAILY
  3. TOVIAZ [Suspect]
     Indication: POLLAKIURIA
     Dosage: 8 MG, DAILY
     Dates: start: 20120302, end: 20120501
  4. TRAZODONE [Concomitant]
     Indication: DEPRESSION
     Dosage: 100 MG, DAILY AT NIGHT
  5. CYMBALTA [Suspect]
     Indication: NEUROPATHY PERIPHERAL
     Dosage: 30 MG, DAILY
  6. CYMBALTA [Suspect]
     Indication: PARAESTHESIA
  7. BACTRIM DS [Concomitant]
     Indication: CYSTITIS
     Dosage: 800/160, MG, DAILY
  8. CELEBREX [Concomitant]
     Indication: SPONDYLITIS
  9. PRAVACHOL [Concomitant]
     Indication: BLOOD CHOLESTEROL INCREASED
     Dosage: 80 MG, DAILY
  10. PROTONIX [Suspect]
     Indication: GASTRIC DISORDER
     Dosage: UNK
  11. NIFEDIPINE [Concomitant]
     Dosage: 30 MG, DAILY
  12. CYMBALTA [Suspect]
     Indication: HYPOAESTHESIA
  13. CYMBALTA [Suspect]
     Indication: BURNING SENSATION

REACTIONS (19)
  - SWELLING [None]
  - LIP DRY [None]
  - COUGH [None]
  - HEADACHE [None]
  - RASH [None]
  - JOINT SWELLING [None]
  - WEIGHT DECREASED [None]
  - PHARYNGEAL OEDEMA [None]
  - OEDEMA PERIPHERAL [None]
  - DRY THROAT [None]
  - BACK PAIN [None]
  - DRY MOUTH [None]
  - NAUSEA [None]
  - SWOLLEN TONGUE [None]
  - DRY EYE [None]
  - GASTRITIS [None]
  - CONSTIPATION [None]
  - URINARY TRACT DISORDER [None]
  - CONTUSION [None]
